FAERS Safety Report 9244545 (Version 1)
Quarter: 2013Q1

REPORT INFORMATION
  Report Type: Spontaneous
  Country: US (occurrence: None)
  Receive Date: 20121123
  Receipt Date: 20121123
  Transmission Date: 20140127
  Serious: No
  Sender: FDA-Public Use
  Company Number: 360939

PATIENT
  Age: 65 Year
  Sex: Male

DRUGS (2)
  1. VICTOZA [Suspect]
     Indication: TYPE 2 DIABETES MELLITUS
     Route: 058
     Dates: start: 201207, end: 201207
  2. LANTUS ( INSULIN GLARGINE) [Concomitant]

REACTIONS (5)
  - Hot flush [None]
  - Insomnia [None]
  - Headache [None]
  - Drug effect decreased [None]
  - Drug ineffective [None]
